FAERS Safety Report 5338065-5 (Version None)
Quarter: 2007Q2

REPORT INFORMATION
  Report Type: 
  Country: None (occurrence: None)
  Receive Date: 20070530
  Receipt Date: 20070521
  Transmission Date: 20071010
  Serious: Yes (Other)
  Sender: FDA-Public Use
  Company Number: GB-JNJFOC-20070404326

PATIENT
  Age: 43 Year
  Sex: Female
  Weight: 82 kg

DRUGS (8)
  1. RISPERDAL [Suspect]
     Indication: PARANOIA
  2. RISPERDAL [Suspect]
     Indication: AGGRESSION
  3. SIMVASTATIN [Concomitant]
     Dosage: TAKEN AT 8PM
  4. ASPIRIN [Concomitant]
     Dosage: TAKEN AT 8AM
  5. METFORMIN HCL [Concomitant]
     Indication: DIABETES MELLITUS
  6. GLICLAZIDE [Concomitant]
     Indication: DIABETES MELLITUS
     Dosage: 80MG TAKEN MANE AND 160MG TAKEN AT 6PM
  7. VITAMIN E [Concomitant]
  8. ASCORBIC ACID [Concomitant]
     Dosage: TAKEN IN THE MORNING

REACTIONS (2)
  - DRUG WITHDRAWAL SYNDROME [None]
  - DYSKINESIA [None]
